FAERS Safety Report 6624028-6 (Version None)
Quarter: 2010Q1

REPORT INFORMATION
  Report Type: 
  Country: None (occurrence: None)
  Receive Date: 20100310
  Receipt Date: 20100301
  Transmission Date: 20100710
  Serious: Yes (Hospitalization, Other)
  Sender: FDA-Public Use
  Company Number: PHHY2009DE09001

PATIENT
  Sex: Male

DRUGS (4)
  1. CO-DIOVAN [Suspect]
     Indication: HYPERTENSION
     Dosage: HALF TABLET DAILY
     Route: 048
     Dates: start: 20070101, end: 20080620
  2. DIOVAN [Suspect]
  3. SIMVASTATIN [Concomitant]
     Dosage: UNK
     Route: 048
  4. ASS ^CT-ARZNEIMITTEL^ [Concomitant]
     Dosage: UNK
     Route: 048

REACTIONS (30)
  - ACCIDENT [None]
  - ACTIVITIES OF DAILY LIVING IMPAIRED [None]
  - BACK PAIN [None]
  - CHEST PAIN [None]
  - CIRCULATORY COLLAPSE [None]
  - CONDITION AGGRAVATED [None]
  - CONTUSION [None]
  - DEHYDRATION [None]
  - DYSPNOEA [None]
  - EXOSTOSIS [None]
  - FALL [None]
  - HAEMOTHORAX [None]
  - INTERVERTEBRAL DISC COMPRESSION [None]
  - LIGAMENT SPRAIN [None]
  - LOSS OF CONSCIOUSNESS [None]
  - LUMBAR SPINE FLATTENING [None]
  - MUSCLE DISORDER [None]
  - MUSCULOSKELETAL STIFFNESS [None]
  - PAIN [None]
  - RIB FRACTURE [None]
  - SPINAL COMPRESSION FRACTURE [None]
  - SPINAL CORD INJURY LUMBAR [None]
  - SPINAL CORD INJURY THORACIC [None]
  - SPINAL DEFORMITY [None]
  - SPINAL DEFORMITY CORRECTION [None]
  - SUPRAVENTRICULAR EXTRASYSTOLES [None]
  - SYNCOPE [None]
  - THORACIC VERTEBRAL FRACTURE [None]
  - VENTRICULAR EXTRASYSTOLES [None]
  - VERTEBROPLASTY [None]
